FAERS Safety Report 7992507-5 (Version None)
Quarter: 2011Q4

REPORT INFORMATION
  Report Type: 
  Country: None (occurrence: None)
  Receive Date: 20111219
  Receipt Date: 20111213
  Transmission Date: 20120403
  Serious: Yes (Other)
  Sender: FDA-Public Use
  Company Number: FR-PFIZER INC-2011275365

PATIENT
  Age: 61 Year
  Sex: Male

DRUGS (10)
  1. HUMIRA [Suspect]
     Indication: RHEUMATOID ARTHRITIS
     Dosage: 40 MG EVERY TWO WEEKS
     Route: 058
     Dates: start: 20041101, end: 20041201
  2. ARAVA [Suspect]
     Dosage: 20 MG DAILY THEN 10 MG DAILY
     Dates: start: 20050401, end: 20070101
  3. REMICADE [Suspect]
     Indication: RHEUMATOID ARTHRITIS
     Dosage: UNK
     Dates: start: 20050526, end: 20061211
  4. CYCLOPHOSPHAMIDE [Suspect]
     Indication: RETINAL VASCULITIS
     Dosage: UNK
     Dates: start: 20041201, end: 20050527
  5. PREDNISONE TAB [Concomitant]
     Dosage: 30 MG DAILY, THE TAPERED
  6. ENBREL [Suspect]
     Indication: RHEUMATOID ARTHRITIS
     Dosage: 25 MG, 2X/WEEK
     Dates: start: 20040301, end: 20041001
  7. SOLU-MEDROL [Suspect]
     Dosage: 2 BOLUS
     Dates: start: 20041201
  8. MABTHERA [Suspect]
     Indication: RHEUMATOID ARTHRITIS
     Dosage: UNK
     Dates: start: 20070201, end: 20110201
  9. METHOTREXATE SODIUM [Concomitant]
     Dosage: 5 MG, WEEKLY
     Dates: start: 20041001, end: 20050201
  10. ACTEMRA [Suspect]
     Indication: RHEUMATOID ARTHRITIS

REACTIONS (4)
  - RETINAL VASCULITIS [None]
  - DRUG EFFECT DECREASED [None]
  - BLADDER CANCER [None]
  - DIPLOPIA [None]
